FAERS Safety Report 6657795-6 (Version None)
Quarter: 2010Q1

REPORT INFORMATION
  Report Type: 
  Country: None (occurrence: None)
  Receive Date: 20100330
  Receipt Date: 20100322
  Transmission Date: 20100710
  Serious: Yes (Hospitalization)
  Sender: FDA-Public Use
  Company Number: US-SANOFI-AVENTIS-2010SA012085

PATIENT
  Age: 51 Year
  Sex: Male
  Weight: 194.1 kg

DRUGS (13)
  1. PLAVIX [Suspect]
     Indication: ACUTE CORONARY SYNDROME
     Route: 048
     Dates: start: 20090718
  2. ASPIRIN [Concomitant]
     Dates: start: 20090711
  3. IMDUR [Concomitant]
     Dates: start: 20090711
  4. COREG [Concomitant]
     Dates: start: 20090711
  5. SIMVASTATIN [Concomitant]
     Dates: start: 20090711
  6. ACYCLOVIR [Concomitant]
     Dates: start: 20090711
  7. LANTUS [Concomitant]
     Dates: start: 20090711
  8. HUMALOG [Concomitant]
     Dates: start: 20090711
  9. PRILOSEC [Concomitant]
     Dates: start: 20090711
  10. PERCOCET [Concomitant]
     Dates: start: 20090729
  11. LASIX [Concomitant]
     Dates: start: 20090901
  12. NITRO-SPRAY [Concomitant]
     Dates: start: 20091007
  13. GLIPIZIDE [Concomitant]
     Dates: start: 20090711

REACTIONS (4)
  - CARDIAC FAILURE CONGESTIVE [None]
  - CELLULITIS [None]
  - RENAL FAILURE [None]
  - STAPHYLOCOCCAL INFECTION [None]
